FAERS Safety Report 7982360-8 (Version None)
Quarter: 2011Q4

REPORT INFORMATION
  Report Type: 
  Country: None (occurrence: None)
  Receive Date: 20111215
  Receipt Date: 20111206
  Transmission Date: 20120403
  Serious: Yes (Other)
  Sender: FDA-Public Use
  Company Number: PHHY2011US92238

PATIENT
  Age: 57 Year
  Sex: Male

DRUGS (2)
  1. ZOLEDRONIC ACID [Suspect]
     Indication: MULTIPLE MYELOMA
     Dosage: 4 MG, EVERY THREE WEEKS
     Route: 042
  2. PREDNISONE [Concomitant]
     Dosage: 50 MG, EVERY OTHER DAY
     Route: 048

REACTIONS (2)
  - FOOT FRACTURE [None]
  - PAIN IN EXTREMITY [None]
